FAERS Safety Report 6348867-4 (Version None)
Quarter: 2009Q3

REPORT INFORMATION
  Report Type: 
  Country: None (occurrence: None)
  Receive Date: 20090908
  Receipt Date: 20090824
  Transmission Date: 20100115
  Serious: No
  Sender: FDA-Public Use
  Company Number: C-09-0196

PATIENT
  Age: 84 Year
  Sex: Female

DRUGS (2)
  1. CLOBETASOL PROPIONATE TOPICAL SOLUTION [Suspect]
     Indication: SKIN IRRITATION
  2. CLOBEX [Concomitant]

REACTIONS (2)
  - HAIR COLOUR CHANGES [None]
  - HEADACHE [None]
